FAERS Safety Report 25774203 (Version 1)
Quarter: 2025Q3

REPORT INFORMATION
  Report Type: Spontaneous
  Country: US (occurrence: None)
  Receive Date: 20250905
  Receipt Date: 20250905
  Transmission Date: 20251021
  Serious: Yes (Life-Threatening, Disabling, Other)
  Sender: FDA-CTU
  Company Number: None

PATIENT
  Age: 73 Year
  Sex: Female
  Weight: 51.75 kg

DRUGS (9)
  1. COZAAR [Suspect]
     Active Substance: LOSARTAN POTASSIUM
     Indication: Blood pressure increased
     Route: 048
     Dates: start: 20240923, end: 20250816
  2. Hydrochlorothiazide 25mg x1 [Concomitant]
  3. prednisone 5mg x2 [Concomitant]
  4. pramipexole 1mgx 1 [Concomitant]
  5. trazadone 5mg x2 [Concomitant]
  6. pantoprazole 40mg x1 [Concomitant]
  7. bupropion HCL 150mg 1x [Concomitant]
  8. probiotocs [Concomitant]
  9. herbal lower bowel stimulator [Concomitant]

REACTIONS (6)
  - Lupus-like syndrome [None]
  - Impaired work ability [None]
  - Stress [None]
  - Depression [None]
  - Back pain [None]
  - Renal disorder [None]

NARRATIVE: CASE EVENT DATE: 20250815
